FAERS Safety Report 20101204 (Version 6)
Quarter: 2025Q2

REPORT INFORMATION
  Report Type: Report from Study
  Country: US (occurrence: US)
  Receive Date: 20211123
  Receipt Date: 20250414
  Transmission Date: 20250716
  Serious: Yes (Hospitalization, Other)
  Sender: TAKEDA
  Company Number: US-TAKEDA-2021TUS074134

PATIENT
  Age: 5 Year
  Sex: Male
  Weight: 20.6 kg

DRUGS (7)
  1. TEDUGLUTIDE [Suspect]
     Active Substance: TEDUGLUTIDE
     Indication: Short-bowel syndrome
     Dosage: UNK, QD
     Dates: start: 20210508
  2. TEDUGLUTIDE [Suspect]
     Active Substance: TEDUGLUTIDE
  3. TEDUGLUTIDE [Suspect]
     Active Substance: TEDUGLUTIDE
     Dosage: UNK, QD
     Dates: start: 20210805
  4. TEDUGLUTIDE [Suspect]
     Active Substance: TEDUGLUTIDE
  5. TEDUGLUTIDE [Suspect]
     Active Substance: TEDUGLUTIDE
  6. TEDUGLUTIDE [Suspect]
     Active Substance: TEDUGLUTIDE
     Dosage: UNK, QD
  7. TEDUGLUTIDE [Suspect]
     Active Substance: TEDUGLUTIDE
     Dosage: UNK, QD

REACTIONS (10)
  - Respiratory syncytial virus infection [Unknown]
  - Diarrhoea [Unknown]
  - Influenza [Recovering/Resolving]
  - Pyrexia [Unknown]
  - Weight increased [Unknown]
  - Faeces hard [Unknown]
  - Overgrowth bacterial [Unknown]
  - Drug intolerance [Unknown]
  - Nasopharyngitis [Unknown]
  - Flatulence [Unknown]

NARRATIVE: CASE EVENT DATE: 20250207
